FAERS Safety Report 5939776-0 (Version None)
Quarter: 2008Q4

REPORT INFORMATION
  Report Type: 
  Country: None (occurrence: None)
  Receive Date: 20081031
  Receipt Date: 20081031
  Transmission Date: 20090506
  Serious: Yes (Hospitalization, Other)
  Sender: FDA-Public Use
  Company Number: None

PATIENT
  Age: 31 Year
  Sex: Female
  Weight: 83.9154 kg

DRUGS (3)
  1. ADIPEX-P [Suspect]
     Dates: start: 20080324, end: 20080531
  2. ADIPEX-P [Suspect]
     Dates: start: 20080804, end: 20080904
  3. GREENLEAF [Concomitant]

REACTIONS (4)
  - DEPRESSION [None]
  - MARITAL PROBLEM [None]
  - MENTAL DISORDER [None]
  - SUICIDAL IDEATION [None]
